FAERS Safety Report 8220422-0 (Version None)
Quarter: 2012Q1

REPORT INFORMATION
  Report Type: 
  Country: None (occurrence: None)
  Receive Date: 20120316
  Receipt Date: 20120307
  Transmission Date: 20120608
  Serious: Yes (Hospitalization, Other)
  Sender: FDA-Public Use
  Company Number: ACO_29629_2012

PATIENT
  Age: 53 Year
  Sex: Male

DRUGS (3)
  1. EXELON [Concomitant]
  2. CRESTOR [Concomitant]
  3. AMPYRA [Suspect]
     Indication: GAIT DISTURBANCE
     Dosage: 10 MG, BID, ORAL
     Route: 048
     Dates: start: 20120201, end: 20120302

REACTIONS (7)
  - CONFUSIONAL STATE [None]
  - POLLAKIURIA [None]
  - MULTIPLE SCLEROSIS RELAPSE [None]
  - DISORIENTATION [None]
  - AGITATION [None]
  - DYSURIA [None]
  - DELIRIUM [None]
